FAERS Safety Report 17362991 (Version 2)
Quarter: 2020Q1

REPORT INFORMATION
  Report Type: Spontaneous
  Country: US (occurrence: US)
  Receive Date: 20200203
  Receipt Date: 20200225
  Transmission Date: 20200409
  Serious: No
  Sender: FDA-Public Use
  Company Number: US-BAYER-2020-014183

PATIENT
  Age: 78 Year

DRUGS (1)
  1. CIPRO [Suspect]
     Active Substance: CIPROFLOXACIN HYDROCHLORIDE
     Dosage: 500 MG

REACTIONS (3)
  - Cervical radiculopathy [None]
  - Gastric disorder [None]
  - Diarrhoea [None]

NARRATIVE: CASE EVENT DATE: 20191221
